FAERS Safety Report 8299666-8 (Version None)
Quarter: 2012Q2

REPORT INFORMATION
  Report Type: 
  Country: None (occurrence: None)
  Receive Date: 20120419
  Receipt Date: 20120413
  Transmission Date: 20120825
  Serious: Yes (Death, Other)
  Sender: FDA-Public Use
  Company Number: ES-ELI_LILLY_AND_COMPANY-ES201204004789

PATIENT
  Sex: Female

DRUGS (1)
  1. FORTEO [Suspect]
     Dosage: UNK UNK, UNKNOWN
     Route: 065
     Dates: start: 20120301

REACTIONS (5)
  - CARDIAC DISORDER [None]
  - DISEASE COMPLICATION [None]
  - DEATH [None]
  - DISEASE PROGRESSION [None]
  - RESPIRATORY DISORDER [None]
